FAERS Safety Report 21298531 (Version 1)
Quarter: 2022Q3

REPORT INFORMATION
  Report Type: Spontaneous
  Country: US (occurrence: None)
  Receive Date: 20220903
  Receipt Date: 20220903
  Transmission Date: 20221027
  Serious: Yes (Hospitalization)
  Sender: FDA-Public Use
  Company Number: None

PATIENT
  Sex: Male

DRUGS (11)
  1. TACROLIMUS [Suspect]
     Active Substance: TACROLIMUS
     Indication: Renal transplant
     Route: 048
     Dates: start: 20220408
  2. ADDERALL [Concomitant]
  3. ATORVASTATIN [Concomitant]
     Active Substance: ATORVASTATIN
  4. BACTRIM DS [Concomitant]
     Active Substance: SULFAMETHOXAZOLE\TRIMETHOPRIM
  5. LASIX [Concomitant]
     Active Substance: FUROSEMIDE
  6. MYCOPHENOLATE [Concomitant]
  7. PREDNISONE [Concomitant]
     Active Substance: PREDNISONE
  8. SIROLIMUS [Concomitant]
     Active Substance: SIROLIMUS
  9. TADALAFIL [Concomitant]
     Active Substance: TADALAFIL
  10. TAMSULOSIN [Concomitant]
     Active Substance: TAMSULOSIN
  11. VALGANCICLOV [Concomitant]

REACTIONS (1)
  - Urinary retention [None]
